FAERS Safety Report 5723684-4 (Version None)
Quarter: 2008Q2

REPORT INFORMATION
  Report Type: 
  Country: None (occurrence: None)
  Receive Date: 20080428
  Receipt Date: 20080417
  Transmission Date: 20081010
  Serious: Yes (Hospitalization)
  Sender: FDA-Public Use
  Company Number: 2008AL002356

PATIENT
  Age: 56 Year
  Sex: Male
  Weight: 78.9259 kg

DRUGS (3)
  1. ETODOLAC [Suspect]
     Indication: ARTHRITIS
     Dosage: 400 MG; QD; PO
     Route: 048
     Dates: start: 20080228, end: 20080301
  2. VYTORIN [Concomitant]
  3. BENAZEPRIL HYDROCHLORIDE [Concomitant]

REACTIONS (2)
  - CHEST DISCOMFORT [None]
  - RENAL FAILURE [None]
